FAERS Safety Report 13639139 (Version 1)
Quarter: 2017Q2

REPORT INFORMATION
  Report Type: Spontaneous
  Country: US (occurrence: US)
  Receive Date: 20170609
  Receipt Date: 20170609
  Transmission Date: 20170830
  Serious: Yes (Other)
  Sender: FDA-Public Use
  Company Number: GXBR2017US001868

PATIENT
  Sex: Male

DRUGS (2)
  1. LISINOPRIL TABLETS, USP [Suspect]
     Active Substance: LISINOPRIL
     Indication: BLOOD PRESSURE MEASUREMENT
     Dosage: 2.5 MG, UNK
     Route: 065
  2. HYDROCHLOROTHIAZIDE TOWA [Concomitant]
     Indication: DIURETIC THERAPY
     Dosage: 12.5 MG, UNK
     Route: 065

REACTIONS (4)
  - Cough [Unknown]
  - Dysphonia [Unknown]
  - Dizziness [Recovered/Resolved]
  - Loss of consciousness [Recovered/Resolved]
